FAERS Safety Report 6338805-2 (Version None)
Quarter: 2009Q3

REPORT INFORMATION
  Report Type: 
  Country: None (occurrence: None)
  Receive Date: 20090903
  Receipt Date: 20090707
  Transmission Date: 20100115
  Serious: No
  Sender: FDA-Public Use
  Company Number: US-KINGPHARMUSA00001-K200900808

PATIENT
  Age: 53 Year
  Sex: Female

DRUGS (4)
  1. SONATA [Suspect]
     Indication: SLEEP DISORDER
     Dosage: UNK
     Dates: start: 20040101, end: 20040101
  2. ANTIBIOTICS [Concomitant]
  3. ANTIFUNGALS [Concomitant]
  4. CHEMOTHERAPEUTICS NOS [Concomitant]
     Dosage: UNK

REACTIONS (1)
  - DRUG EFFECT DECREASED [None]
